FAERS Safety Report 5631141-9 (Version None)
Quarter: 2008Q1

REPORT INFORMATION
  Report Type: 
  Country: None (occurrence: None)
  Receive Date: 20080219
  Receipt Date: 20080215
  Transmission Date: 20080703
  Serious: Yes (Other)
  Sender: FDA-Public Use
  Company Number: FR-BOEHRINGER INGELHEIM GMBH, GERMANY-2008-DE-01008GD

PATIENT
  Sex: Female

DRUGS (9)
  1. MORPHINE [Suspect]
     Indication: PROCEDURAL PAIN
     Dosage: 0.2 MG/KG
     Route: 042
  2. MORPHINE [Suspect]
     Dosage: MORPHINE TITRATION DEPENDING ON PAIN INTENSITY
     Route: 042
  3. PROFENID [Suspect]
     Indication: PROCEDURAL PAIN
     Route: 042
  4. HYDROXYZINE [Concomitant]
     Indication: ANAESTHETIC PREMEDICATION
     Dosage: 50 OR 100 MG
     Route: 048
  5. PROPOFOL [Concomitant]
     Indication: INDUCTION OF ANAESTHESIA
     Dosage: 2.5 MG/KG
     Route: 042
  6. PROPOFOL [Concomitant]
     Indication: MAINTENANCE OF ANAESTHESIA
     Dosage: DOSES WERE ADJUSTED TO ACHIEVE ADEQUATE ANAESTHESIA
  7. REMIFENTANIL [Concomitant]
     Indication: INDUCTION OF ANAESTHESIA
     Dosage: 1 MCG/KG BOLUS DURING 30 - 60 S, FOLLOWED BY AN INFUSION OF 0.5 MCG/KG/MIN
     Route: 042
  8. REMIFENTANIL [Concomitant]
     Indication: MAINTENANCE OF ANAESTHESIA
     Dosage: DOSES WERE ADJUSTED TO ACHIEVE ADEQUATE ANAESTHESIA
  9. ATRACURIUM BESYLATE [Concomitant]
     Indication: ENDOTRACHEAL INTUBATION
     Dosage: 0.5 MG/KG

REACTIONS (1)
  - HYPERSENSITIVITY [None]
